FAERS Safety Report 13792555 (Version 1)
Quarter: 2017Q3

REPORT INFORMATION
  Report Type: Spontaneous
  Country: US (occurrence: US)
  Receive Date: 20170725
  Receipt Date: 20170725
  Transmission Date: 20171127
  Serious: Yes (Other)
  Sender: FDA-Public Use
  Company Number: US-BEH-2017082285

PATIENT
  Sex: Female
  Weight: 89.8 kg

DRUGS (18)
  1. ZEMAIRA [Suspect]
     Active Substance: .ALPHA.1-PROTEINASE INHIBITOR HUMAN
     Indication: ALPHA-1 ANTI-TRYPSIN DEFICIENCY
     Dosage: 60 MG/KG, QW
     Route: 042
     Dates: start: 20170629
  2. LMX                                /00033401/ [Concomitant]
  3. PREVACID [Concomitant]
     Active Substance: LANSOPRAZOLE
  4. ZITHROMAX [Concomitant]
     Active Substance: AZITHROMYCIN DIHYDRATE
  5. PEPCID                             /00305201/ [Concomitant]
     Active Substance: ALUMINUM HYDROXIDE\MAGNESIUM CARBONATE
  6. SODIUM CHLORIDE. [Concomitant]
     Active Substance: SODIUM CHLORIDE
  7. NORCO [Concomitant]
     Active Substance: ACETAMINOPHEN\HYDROCODONE BITARTRATE
  8. LEVEMIR [Concomitant]
     Active Substance: INSULIN DETEMIR
  9. CANAGLIFLOZIN [Concomitant]
     Active Substance: CANAGLIFLOZIN
  10. EPINEPHRINE. [Concomitant]
     Active Substance: EPINEPHRINE
  11. VICTOZA [Concomitant]
     Active Substance: LIRAGLUTIDE
  12. LASIX [Concomitant]
     Active Substance: FUROSEMIDE
  13. ZEMAIRA [Suspect]
     Active Substance: .ALPHA.1-PROTEINASE INHIBITOR HUMAN
     Dosage: UNK
     Route: 042
  14. DIPHENHYDRAMINE. [Concomitant]
     Active Substance: DIPHENHYDRAMINE
  15. THEO-24 [Concomitant]
     Active Substance: THEOPHYLLINE ANHYDROUS
  16. HUMALOG [Concomitant]
     Active Substance: INSULIN LISPRO
  17. PREDNISONE. [Concomitant]
     Active Substance: PREDNISONE
  18. LOSARTAN. [Concomitant]
     Active Substance: LOSARTAN

REACTIONS (2)
  - Headache [Unknown]
  - Oxygen therapy [Unknown]
